FAERS Safety Report 8870089 (Version 1)
Quarter: 2012Q4

REPORT INFORMATION
  Report Type: 
  Country: US (occurrence: US)
  Receive Date: 20121026
  Receipt Date: 20121026
  Transmission Date: 20130627
  Serious: No
  Sender: FDA-Public Use
  Company Number: US-AMGEN-USASP2012043880

PATIENT
  Age: 57 Year
  Sex: Female
  Weight: 78.01 kg

DRUGS (9)
  1. ENBREL [Suspect]
     Indication: PRODUCT USED FOR UNKNOWN INDICATION
     Dosage: 50 mg, qwk
     Route: 058
  2. CELEBREX [Concomitant]
     Dosage: 100 mg, UNK
  3. METHOTREXATE [Concomitant]
     Dosage: 2.5 mg, UNK
  4. PREDNISONE [Concomitant]
     Dosage: 1 mg, UNK
  5. BENADRYL [Concomitant]
     Dosage: 25 mg, UNK
  6. SUDAFED                            /00076302/ [Concomitant]
     Dosage: 30 mg, UNK
  7. ZANTAC 75 DISSOLVE [Concomitant]
     Dosage: UNK
  8. CALCIUM + VIT D [Concomitant]
     Dosage: 600
  9. FOLIC ACID [Suspect]
     Dosage: UNK

REACTIONS (2)
  - Hypotension [Unknown]
  - Dizziness [Unknown]
